FAERS Safety Report 7449066-5 (Version None)
Quarter: 2011Q2

REPORT INFORMATION
  Report Type: 
  Country: None (occurrence: None)
  Receive Date: 20110502
  Receipt Date: 20110428
  Transmission Date: 20111010
  Serious: Yes (Hospitalization)
  Sender: FDA-Public Use
  Company Number: TR-BRISTOL-MYERS SQUIBB COMPANY-15697733

PATIENT
  Age: 17 Year
  Sex: Male

DRUGS (5)
  1. ARIPIPRAZOLE [Interacting]
     Indication: IMPULSIVE BEHAVIOUR
     Dosage: TAKEN AT NIGHT
  2. RISPERIDONE [Interacting]
     Indication: IMPULSIVE BEHAVIOUR
     Dosage: TWO DIVIDED DOSES;REDUCED TO 0.75MG;RESTARTED WITH 2MG
  3. ARIPIPRAZOLE [Suspect]
     Indication: AGGRESSION
     Dosage: TAKEN AT NIGHT
  4. CONCERTA [Interacting]
     Indication: ATTENTION DEFICIT/HYPERACTIVITY DISORDER
     Dosage: STARTED WITH 27MG
  5. RISPERIDONE [Interacting]
     Indication: AGGRESSION
     Dosage: TWO DIVIDED DOSES;REDUCED TO 0.75MG;RESTARTED WITH 2MG

REACTIONS (2)
  - PSYCHOTIC DISORDER [None]
  - DRUG INTERACTION [None]
